FAERS Safety Report 5603139-8 (Version None)
Quarter: 2008Q1

REPORT INFORMATION
  Report Type: 
  Country: None (occurrence: None)
  Receive Date: 20080125
  Receipt Date: 20080116
  Transmission Date: 20080703
  Serious: Yes (Hospitalization)
  Sender: FDA-Public Use
  Company Number: CA-PFIZER INC-2007089025

PATIENT
  Sex: Male
  Weight: 80 kg

DRUGS (2)
  1. SU-011,248 [Suspect]
     Indication: METASTATIC RENAL CELL CARCINOMA
     Route: 048
     Dates: start: 20060524, end: 20060711
  2. SU-011,248 [Suspect]
     Route: 048
     Dates: start: 20060712, end: 20071009

REACTIONS (2)
  - DIARRHOEA [None]
  - PSEUDOMEMBRANOUS COLITIS [None]
